FAERS Safety Report 5259519-6 (Version None)
Quarter: 2007Q1

REPORT INFORMATION
  Report Type: 
  Country: None (occurrence: None)
  Receive Date: 20070306
  Receipt Date: 20070226
  Transmission Date: 20070707
  Serious: Yes (Life-Threatening, Hospitalization)
  Sender: FDA-Public Use
  Company Number: 232239

PATIENT
  Age: 59 Year
  Sex: Male

DRUGS (8)
  1. RITUXAN [Suspect]
     Indication: RHEUMATOID ARTHRITIS
     Dosage: 1000 MG, DAYS 1+15, INTRAVENOUS
     Route: 042
     Dates: start: 20060501
  2. PREDNISONE [Concomitant]
  3. NEURONTIN [Concomitant]
  4. PHENOBARB (PHENOBARBITAL) [Concomitant]
  5. TEGRETOL [Concomitant]
  6. ZIAC [Concomitant]
  7. ASCORBIC ACID [Concomitant]
  8. VITAMIN D (CHOLECALCIFEROL) [Concomitant]

REACTIONS (13)
  - ASTHENIA [None]
  - BEDRIDDEN [None]
  - CONFUSIONAL STATE [None]
  - DELIRIUM [None]
  - DISORIENTATION [None]
  - GASTRIC DISORDER [None]
  - NAUSEA [None]
  - PNEUMONIA LEGIONELLA [None]
  - RHEUMATOID ARTHRITIS [None]
  - SEPSIS [None]
  - SOMNOLENCE [None]
  - STOMACH DISCOMFORT [None]
  - VOMITING [None]
